FAERS Safety Report 17087501 (Version 2)
Quarter: 2020Q3

REPORT INFORMATION
  Report Type: Spontaneous
  Country: GB (occurrence: GB)
  Receive Date: 20191128
  Receipt Date: 20200110
  Transmission Date: 20201105
  Serious: Yes (Other)
  Sender: FDA-Public Use
  Company Number: GB-TEVA-2019-GB-1141614

PATIENT
  Sex: Male

DRUGS (7)
  1. ETORICOXIB. [Suspect]
     Active Substance: ETORICOXIB
     Dosage: UNK
  2. RANITIDINE HYDROCHLORIDE. [Suspect]
     Active Substance: RANITIDINE HYDROCHLORIDE
     Indication: OESOPHAGITIS
     Dosage: UNK
  3. DOMPERIDONE [Suspect]
     Active Substance: DOMPERIDONE
     Dosage: UNK
  4. ESOMEPRAZOLE. [Suspect]
     Active Substance: ESOMEPRAZOLE MAGNESIUM
     Indication: BARRETT^S OESOPHAGUS
  5. COCODAMOL [Suspect]
     Active Substance: ACETAMINOPHEN\CODEINE PHOSPHATE
     Dosage: (CODEINE PHOSPHATE 30 MG/ PARACETAMOL 500 MG)
  6. ESOMEPRAZOLE. [Suspect]
     Active Substance: ESOMEPRAZOLE MAGNESIUM
     Indication: OESOPHAGITIS
     Dosage: UNK
  7. RANITIDINE HYDROCHLORIDE. [Suspect]
     Active Substance: RANITIDINE HYDROCHLORIDE
     Indication: BARRETT^S OESOPHAGUS

REACTIONS (8)
  - Neck pain [Unknown]
  - Barrett^s oesophagus [Unknown]
  - Abdominal distension [Unknown]
  - Eructation [Unknown]
  - Oropharyngeal discomfort [Unknown]
  - Regurgitation [Unknown]
  - Vitamin B12 deficiency [Unknown]
  - Dyspepsia [Unknown]
